FAERS Safety Report 17038882 (Version 2)
Quarter: 2020Q1

REPORT INFORMATION
  Report Type: Spontaneous
  Country: JP (occurrence: JP)
  Receive Date: 20191115
  Receipt Date: 20200217
  Transmission Date: 20200409
  Serious: Yes (Hospitalization, Other)
  Sender: FDA-Public Use
  Company Number: JP-ELI_LILLY_AND_COMPANY-JP201911006717

PATIENT
  Age: 74 Year
  Sex: Male

DRUGS (4)
  1. LEVOFOLINATE CALCIUM [Concomitant]
     Active Substance: LEVOLEUCOVORIN CALCIUM
     Indication: COLON CANCER
     Dosage: 300 (UNSPECIFIED UNITS), UNKNOWN
     Route: 041
     Dates: start: 20190521
  2. OXALIPLATIN. [Suspect]
     Active Substance: OXALIPLATIN
     Indication: COLON CANCER
     Dosage: 30 (UNSPECIFIED UNITS), UNKNOWN
     Route: 041
     Dates: start: 20190626
  3. ERBITUX [Suspect]
     Active Substance: CETUXIMAB
     Indication: COLON CANCER
     Dosage: UNK, UNKNOWN
     Route: 042
     Dates: start: 20190521
  4. 5 FU [Suspect]
     Active Substance: FLUOROURACIL
     Indication: COLON CANCER
     Dosage: 3600 (UNSPECIFIED UNITS), UNKNOWN
     Route: 041
     Dates: start: 20190521

REACTIONS (3)
  - Gastrointestinal disorder [Unknown]
  - Respiratory disorder [Recovered/Resolved]
  - Vomiting [Unknown]

NARRATIVE: CASE EVENT DATE: 20190627
